FAERS Safety Report 17678810 (Version 2)
Quarter: 2025Q2

REPORT INFORMATION
  Report Type: Spontaneous
  Country: US (occurrence: US)
  Receive Date: 20200417
  Receipt Date: 20250624
  Transmission Date: 20250717
  Serious: Yes (Life-Threatening, Other)
  Sender: AUROBINDO
  Company Number: AUR-APL-2020-017784

PATIENT
  Age: 65 Year
  Sex: Female

DRUGS (1)
  1. CAPECITABINE [Suspect]
     Active Substance: CAPECITABINE
     Indication: Breast cancer metastatic
     Route: 065

REACTIONS (3)
  - Cardiomyopathy [Recovered/Resolved]
  - Stress cardiomyopathy [Recovered/Resolved]
  - Bundle branch block left [Recovered/Resolved]
